FAERS Safety Report 21423941 (Version 1)
Quarter: 2022Q4

REPORT INFORMATION
  Report Type: Spontaneous
  Country: US (occurrence: None)
  Receive Date: 20221007
  Receipt Date: 20221007
  Transmission Date: 20230112
  Serious: Yes (Hospitalization, Other)
  Sender: FDA-Public Use
  Company Number: 2022A334320

PATIENT
  Age: 66 Year
  Sex: Female
  Weight: 72.1 kg

DRUGS (3)
  1. BYETTA [Suspect]
     Active Substance: EXENATIDE
     Indication: Diabetes mellitus
     Route: 058
     Dates: start: 2005, end: 2009
  2. BYETTA [Suspect]
     Active Substance: EXENATIDE
     Indication: Diabetes mellitus
     Route: 058
     Dates: start: 202209
  3. VICTOZA [Concomitant]
     Active Substance: LIRAGLUTIDE

REACTIONS (15)
  - Blindness unilateral [Not Recovered/Not Resolved]
  - COVID-19 [Recovered/Resolved]
  - Gastrointestinal haemorrhage [Recovered/Resolved]
  - Myocardial infarction [Recovered/Resolved]
  - Multiple endocrine neoplasia Type 1 [Not Recovered/Not Resolved]
  - Haemoglobin abnormal [Unknown]
  - Trichorrhexis [Not Recovered/Not Resolved]
  - Diabetic wound [Not Recovered/Not Resolved]
  - Panic attack [Not Recovered/Not Resolved]
  - Blood pressure abnormal [Unknown]
  - Hyperkeratosis [Unknown]
  - Plicated tongue [Unknown]
  - Intentional device misuse [Recovered/Resolved]
  - Incorrect dose administered by device [Recovered/Resolved]
  - Device delivery system issue [Unknown]

NARRATIVE: CASE EVENT DATE: 20190101
